FAERS Safety Report 10618894 (Version 1)
Quarter: 2014Q4

REPORT INFORMATION
  Report Type: Spontaneous
  Country: DE (occurrence: None)
  Receive Date: 20141126
  Receipt Date: 20141126
  Transmission Date: 20150529
  Serious: Yes (Hospitalization)
  Sender: FDA-Public Use
  Company Number: 2014110040

PATIENT
  Sex: Female

DRUGS (2)
  1. D-PENICILLAMINE (PENICILLAMINE) [Suspect]
     Active Substance: PENICILLAMINE
     Indication: HEPATO-LENTICULAR DEGENERATION
  2. VITAMIN B 6 (PYRIDOXINE HYDROCHLORIDE) [Concomitant]

REACTIONS (5)
  - Brain oedema [None]
  - Status epilepticus [None]
  - Complex partial seizures [None]
  - Unresponsive to stimuli [None]
  - Generalised tonic-clonic seizure [None]
